FAERS Safety Report 7092136-4 (Version None)
Quarter: 2010Q4

REPORT INFORMATION
  Report Type: 
  Country: None (occurrence: None)
  Receive Date: 20101109
  Receipt Date: 20100929
  Transmission Date: 20110411
  Serious: Yes (Other)
  Sender: FDA-Public Use
  Company Number: US-BAXTER-2010BH005218

PATIENT
  Age: 50 Year
  Sex: Male
  Weight: 112 kg

DRUGS (47)
  1. HEPARIN SODIUM INJECTION [Suspect]
     Indication: ANGIOGRAM
     Route: 042
     Dates: start: 20080211, end: 20080211
  2. HEPARIN SODIUM INJECTION [Suspect]
     Indication: CORONARY ARTERY BYPASS
     Route: 042
     Dates: start: 20080211, end: 20080211
  3. HEPARIN SODIUM INJECTION [Suspect]
     Indication: PERCUTANEOUS CORONARY INTERVENTION
     Route: 042
     Dates: start: 20080211, end: 20080211
  4. HEPARIN SODIUM INJECTION [Suspect]
     Route: 042
     Dates: start: 20080214, end: 20080214
  5. HEPARIN SODIUM INJECTION [Suspect]
     Route: 042
     Dates: start: 20080214, end: 20080214
  6. HEPARIN SODIUM INJECTION [Suspect]
     Route: 042
     Dates: start: 20080214, end: 20080214
  7. HEPARIN SODIUM INJECTION [Suspect]
     Route: 042
     Dates: start: 20080214, end: 20080214
  8. HEPARIN SODIUM INJECTION [Suspect]
     Route: 042
     Dates: start: 20080214, end: 20080214
  9. HEPARIN SODIUM INJECTION [Suspect]
     Route: 042
     Dates: start: 20080214, end: 20080214
  10. PLAVIX [Concomitant]
     Indication: PRODUCT USED FOR UNKNOWN INDICATION
     Route: 065
  11. NORMAL SALINE [Concomitant]
     Indication: PRODUCT USED FOR UNKNOWN INDICATION
     Route: 065
  12. MORPHINE [Concomitant]
     Indication: PRODUCT USED FOR UNKNOWN INDICATION
     Route: 065
  13. LASIX [Concomitant]
     Indication: PRODUCT USED FOR UNKNOWN INDICATION
     Route: 065
  14. CEFAZOLIN [Concomitant]
     Indication: PRODUCT USED FOR UNKNOWN INDICATION
     Route: 065
  15. TORADOL [Concomitant]
     Indication: PRODUCT USED FOR UNKNOWN INDICATION
     Route: 042
  16. CLORAZEPATE DIPOTASSIUM [Concomitant]
     Indication: PRODUCT USED FOR UNKNOWN INDICATION
     Route: 048
  17. ASPIRIN [Concomitant]
     Indication: PRODUCT USED FOR UNKNOWN INDICATION
     Route: 065
  18. NITRO-BID OINTMENT [Concomitant]
     Indication: PRODUCT USED FOR UNKNOWN INDICATION
     Route: 061
  19. COLACE [Concomitant]
     Indication: PRODUCT USED FOR UNKNOWN INDICATION
     Route: 065
  20. FAMOTIDINE [Concomitant]
     Indication: PRODUCT USED FOR UNKNOWN INDICATION
     Route: 065
  21. METOPROLOL [Concomitant]
     Indication: PRODUCT USED FOR UNKNOWN INDICATION
     Route: 065
  22. LIPITOR [Concomitant]
     Indication: PRODUCT USED FOR UNKNOWN INDICATION
     Route: 048
  23. FENTANYL [Concomitant]
     Indication: PRODUCT USED FOR UNKNOWN INDICATION
     Route: 042
  24. SIMVASTATIN [Concomitant]
     Indication: PRODUCT USED FOR UNKNOWN INDICATION
     Route: 065
  25. NOVOLIN 70/30 [Concomitant]
     Indication: PRODUCT USED FOR UNKNOWN INDICATION
     Route: 058
  26. NOVOLIN 70/30 [Concomitant]
     Route: 058
  27. ZOLOFT [Concomitant]
     Indication: PRODUCT USED FOR UNKNOWN INDICATION
     Route: 065
  28. VERSED [Concomitant]
     Indication: PRODUCT USED FOR UNKNOWN INDICATION
     Route: 042
  29. LIDOCAINE HYDROCHLORIDE IN PLASTIC CONTAINER [Concomitant]
     Indication: PRODUCT USED FOR UNKNOWN INDICATION
     Route: 058
  30. NITROGLYCERIN [Concomitant]
     Indication: PRODUCT USED FOR UNKNOWN INDICATION
     Route: 065
  31. CAPTOPRIL [Concomitant]
     Indication: PRODUCT USED FOR UNKNOWN INDICATION
     Route: 048
  32. INTEGRILIN [Concomitant]
     Indication: PRODUCT USED FOR UNKNOWN INDICATION
     Route: 042
  33. LOVENOX [Concomitant]
     Indication: PRODUCT USED FOR UNKNOWN INDICATION
     Route: 058
  34. NOVOLIN R [Concomitant]
     Indication: PRODUCT USED FOR UNKNOWN INDICATION
     Route: 058
  35. OMEPRAZOLE [Concomitant]
     Indication: PRODUCT USED FOR UNKNOWN INDICATION
     Route: 048
  36. ATIVAN [Concomitant]
     Indication: ANXIETY
     Route: 065
  37. LISINOPRIL [Concomitant]
     Indication: PRODUCT USED FOR UNKNOWN INDICATION
     Route: 048
  38. IMDUR [Concomitant]
     Indication: PRODUCT USED FOR UNKNOWN INDICATION
     Route: 048
  39. MUPIROCIN [Concomitant]
     Indication: PRODUCT USED FOR UNKNOWN INDICATION
     Route: 065
  40. NITRO-BID OINTMENT [Concomitant]
     Route: 061
  41. TYLENOL [Concomitant]
     Indication: PRODUCT USED FOR UNKNOWN INDICATION
     Route: 048
  42. AMBIEN [Concomitant]
     Indication: PRODUCT USED FOR UNKNOWN INDICATION
     Route: 048
  43. DIAZEPAM [Concomitant]
     Indication: PRODUCT USED FOR UNKNOWN INDICATION
     Route: 048
  44. PANTOPRAZOLE [Concomitant]
     Indication: PRODUCT USED FOR UNKNOWN INDICATION
     Route: 048
  45. PERCOCET [Concomitant]
     Indication: PRODUCT USED FOR UNKNOWN INDICATION
     Route: 048
  46. ASCORBIC ACID [Concomitant]
     Indication: PRODUCT USED FOR UNKNOWN INDICATION
     Route: 048
  47. FERROUS SULFATE [Concomitant]
     Indication: PRODUCT USED FOR UNKNOWN INDICATION
     Route: 048

REACTIONS (6)
  - CEREBROVASCULAR ACCIDENT [None]
  - COORDINATION ABNORMAL [None]
  - HYPOTENSION [None]
  - LETHARGY [None]
  - RESTLESS LEGS SYNDROME [None]
  - SUICIDAL IDEATION [None]
